FAERS Safety Report 13086162 (Version 3)
Quarter: 2018Q4

REPORT INFORMATION
  Report Type: Spontaneous
  Country: FR (occurrence: FR)
  Receive Date: 20170104
  Receipt Date: 20181004
  Transmission Date: 20190204
  Serious: Yes (Life-Threatening, Hospitalization)
  Sender: FDA-Public Use
  Company Number: FR-MYLANLABS-2016M1059259

PATIENT
  Age: 61 Year
  Sex: Male

DRUGS (14)
  1. DEXAMETHASONE MYLAN [Suspect]
     Active Substance: DEXAMETHASONE
     Dosage: UNK, 40 MG/J
     Route: 042
  2. MABTHERA [Suspect]
     Active Substance: RITUXIMAB
     Dosage: UNK, 690/J
  3. MABTHERA [Suspect]
     Active Substance: RITUXIMAB
     Indication: MANTLE CELL LYMPHOMA
     Dosage: UNK
     Route: 042
     Dates: start: 20161109, end: 20161116
  4. CARBOPLATINE [Suspect]
     Active Substance: CARBOPLATIN
     Indication: MANTLE CELL LYMPHOMA
     Dosage: 814 MG, QD
     Route: 042
     Dates: start: 20160715, end: 20161017
  5. CYTARABINE EBEWE [Suspect]
     Active Substance: CYTARABINE
     Dosage: UNK, 3680 MG 2 FOIS PAR JOUR
     Route: 042
  6. MABTHERA [Suspect]
     Active Substance: RITUXIMAB
     Dosage: UNK
     Route: 042
     Dates: start: 20160715, end: 20161017
  7. CYTARABINE KABI [Suspect]
     Active Substance: CYTARABINE
     Indication: PRODUCT USED FOR UNKNOWN INDICATION
     Dosage: UNK
     Route: 065
  8. ZEVALIN [Suspect]
     Active Substance: IBRITUMOMAB TIUXETAN
     Dosage: UNK (807 MBQ)
     Route: 042
  9. CYTARABINE KABI [Suspect]
     Active Substance: CYTARABINE
     Indication: MANTLE CELL LYMPHOMA
     Dosage: 3680 MG, BID
     Route: 042
     Dates: start: 201609, end: 20161017
  10. ZEVALIN [Suspect]
     Active Substance: IBRITUMOMAB TIUXETAN
     Indication: MANTLE CELL LYMPHOMA
     Dosage: 807 MBQ, UNK
     Route: 042
     Dates: start: 20161116, end: 20161116
  11. MABTHERA [Suspect]
     Active Substance: RITUXIMAB
     Dosage: UNK, 455/J
     Route: 042
  12. CARBOPLATINE [Suspect]
     Active Substance: CARBOPLATIN
     Dosage: UNK, 814 MG/J
     Route: 042
  13. DEXAMETHASONE MYLAN [Suspect]
     Active Substance: DEXAMETHASONE
     Indication: MANTLE CELL LYMPHOMA
     Dosage: 40 MG, QD
     Route: 042
     Dates: start: 20160715, end: 20161017
  14. CYTARABINE EBEWE [Suspect]
     Active Substance: CYTARABINE
     Indication: MANTLE CELL LYMPHOMA
     Dosage: 3680 MG, BID
     Route: 042
     Dates: start: 20160715, end: 201608

REACTIONS (1)
  - Thrombotic microangiopathy [Recovering/Resolving]

NARRATIVE: CASE EVENT DATE: 20161123
